FAERS Safety Report 8566345-9 (Version None)
Quarter: 2012Q3

REPORT INFORMATION
  Report Type: 
  Country: None (occurrence: None)
  Receive Date: 20120803
  Receipt Date: 20111222
  Transmission Date: 20120928
  Serious: No
  Sender: FDA-Public Use
  Company Number: US-ABBOTT-11P-163-0886447-00

PATIENT
  Sex: Female
  Weight: 79.45 kg

DRUGS (5)
  1. METOPROLOL TARTRATE [Concomitant]
     Indication: CHEST PAIN
  2. NIASPAN [Suspect]
     Indication: HIGH DENSITY LIPOPROTEIN DECREASED
     Route: 048
     Dates: start: 20100101
  3. NIASPAN [Suspect]
  4. LIPITOR [Concomitant]
     Indication: BLOOD CHOLESTEROL
  5. NORVASC [Concomitant]
     Indication: CHEST PAIN

REACTIONS (1)
  - FLUSHING [None]
